FAERS Safety Report 14685796 (Version 1)
Quarter: 2018Q1

REPORT INFORMATION
  Report Type: Spontaneous
  Country: FR (occurrence: FR)
  Receive Date: 20180327
  Receipt Date: 20180327
  Transmission Date: 20180509
  Serious: Yes (Hospitalization, Other)
  Sender: FDA-Public Use
  Company Number: FR-PFIZER INC-2018121254

PATIENT
  Age: 47 Year
  Sex: Male

DRUGS (1)
  1. IBUPROFEN. [Suspect]
     Active Substance: IBUPROFEN
     Indication: HAEMORRHOIDS
     Dosage: UNK
     Route: 048
     Dates: start: 20150810, end: 20150812

REACTIONS (4)
  - Renal tubular necrosis [Recovering/Resolving]
  - Acute kidney injury [Recovering/Resolving]
  - Intentional product misuse [Unknown]
  - Nephritis allergic [Recovering/Resolving]

NARRATIVE: CASE EVENT DATE: 20150810
